FAERS Safety Report 19050996 (Version 1)
Quarter: 2021Q1

REPORT INFORMATION
  Report Type: Spontaneous
  Country: US (occurrence: US)
  Receive Date: 20210324
  Receipt Date: 20210324
  Transmission Date: 20210420
  Serious: No
  Sender: FDA-Public Use
  Company Number: US-ALLERGAN-2019400US

PATIENT
  Sex: Male

DRUGS (1)
  1. CANASA [Suspect]
     Active Substance: MESALAMINE
     Indication: PROCTITIS ULCERATIVE
     Dosage: UNK
     Route: 065

REACTIONS (4)
  - Haematochezia [Unknown]
  - Dyspnoea [Unknown]
  - Drug hypersensitivity [Unknown]
  - Rectal discharge [Unknown]
